FAERS Safety Report 6541191-6 (Version None)
Quarter: 2010Q1

REPORT INFORMATION
  Report Type: 
  Country: None (occurrence: None)
  Receive Date: 20100118
  Receipt Date: 20100113
  Transmission Date: 20100710
  Serious: Yes (Other)
  Sender: FDA-Public Use
  Company Number: B0625172A

PATIENT
  Age: 62 Year
  Sex: Male

DRUGS (2)
  1. ONDANSETRON [Suspect]
     Indication: AQUAGENIC PRURITUS
     Dosage: 24MG PER DAY
     Route: 048
     Dates: start: 20031120, end: 20040603
  2. DOXEPIN HCL [Concomitant]
     Indication: AQUAGENIC PRURITUS
     Dosage: 100MG PER DAY
     Route: 065
     Dates: start: 20030703

REACTIONS (1)
  - CHLOROMA [None]
